FAERS Safety Report 4390264-5 (Version None)
Quarter: 2004Q3

REPORT INFORMATION
  Report Type: 
  Country: None (occurrence: None)
  Receive Date: 20040706
  Receipt Date: 20040624
  Transmission Date: 20050211
  Serious: Yes (Other)
  Sender: FDA-Public Use
  Company Number: GB-ROCHE-371907

PATIENT
  Sex: Male

DRUGS (1)
  1. ROACCUTANE [Suspect]
     Indication: DRUG USE FOR UNKNOWN INDICATION
     Route: 065

REACTIONS (4)
  - DEPRESSION [None]
  - SOCIAL AVOIDANT BEHAVIOUR [None]
  - SOCIAL FEAR [None]
  - SUICIDAL IDEATION [None]
